FAERS Safety Report 7945645-7 (Version None)
Quarter: 2011Q4

REPORT INFORMATION
  Report Type: 
  Country: None (occurrence: None)
  Receive Date: 20111121
  Receipt Date: 20111111
  Transmission Date: 20120403
  Serious: Yes (Other)
  Sender: FDA-Public Use
  Company Number: 2011SP051400

PATIENT
  Age: 34 Year
  Sex: Female
  Weight: 56 kg

DRUGS (2)
  1. ALPRAZOLAM [Concomitant]
  2. DESOGESTREL AND ETHINYL ESTRADIOL [Suspect]
     Indication: CONTRACEPTION
     Dosage: QD;PO
     Route: 048
     Dates: start: 20111024

REACTIONS (10)
  - MENSTRUATION IRREGULAR [None]
  - INAPPROPRIATE SCHEDULE OF DRUG ADMINISTRATION [None]
  - NECK PAIN [None]
  - CONDITION AGGRAVATED [None]
  - MALAISE [None]
  - TREMOR [None]
  - TACHYCARDIA [None]
  - ALOPECIA [None]
  - HEADACHE [None]
  - RESPIRATORY DISORDER [None]
